FAERS Safety Report 24572533 (Version 1)
Quarter: 2024Q4

REPORT INFORMATION
  Report Type: Spontaneous
  Country: US (occurrence: None)
  Receive Date: 20241101
  Receipt Date: 20241101
  Transmission Date: 20250115
  Serious: Yes (Disabling, Other)
  Sender: Public
  Company Number: None

PATIENT
  Age: 63 Year
  Sex: Male
  Weight: 93.15 kg

DRUGS (13)
  1. MAVENCLAD [Suspect]
     Active Substance: CLADRIBINE
     Indication: Relapsing-remitting multiple sclerosis
     Dates: start: 20220701, end: 20230801
  2. ajovy [Concomitant]
  3. ASA 81mg [Concomitant]
  4. LISINOPRIL [Concomitant]
  5. HCTZ [Concomitant]
  6. VIAGRA [Concomitant]
  7. Vitamin D3 30,000 IU [Concomitant]
  8. TOPAMAX [Concomitant]
  9. CRESTOR [Concomitant]
     Active Substance: ROSUVASTATIN CALCIUM
  10. TYLENOL [Concomitant]
  11. IBUPROFEN [Concomitant]
     Active Substance: IBUPROFEN
  12. NAPROXEN [Concomitant]
     Active Substance: NAPROXEN
  13. MELATONIN [Concomitant]
     Active Substance: MELATONIN

REACTIONS (2)
  - White blood cell count decreased [None]
  - Lymphocyte count decreased [None]

NARRATIVE: CASE EVENT DATE: 20241030
